FAERS Safety Report 23783070 (Version 1)
Quarter: 2024Q2

REPORT INFORMATION
  Report Type: Spontaneous
  Country: NL (occurrence: NL)
  Receive Date: 20240425
  Receipt Date: 20240425
  Transmission Date: 20240716
  Serious: Yes (Other)
  Sender: FDA-Public Use
  Company Number: NL-009507513-2404NLD000664

PATIENT
  Age: 62 Year
  Sex: Male

DRUGS (2)
  1. IRINOTECAN [Suspect]
     Active Substance: IRINOTECAN
     Indication: Glioblastoma
     Dosage: UNK
     Route: 065
  2. TEMOZOLOMIDE [Suspect]
     Active Substance: TEMOZOLOMIDE
     Indication: Glioblastoma
     Dosage: UNK
     Route: 065

REACTIONS (25)
  - Hemiparesis [Unknown]
  - Quadrantanopia [Unknown]
  - Epilepsy [Unknown]
  - Confusional state [Unknown]
  - Visual impairment [Unknown]
  - Memory impairment [Unknown]
  - Fatigue [Unknown]
  - Hypoaesthesia [Unknown]
  - Language disorder [Unknown]
  - Oedema [Unknown]
  - Paraesthesia [Unknown]
  - Fine motor skill dysfunction [Unknown]
  - Personality change [Unknown]
  - Vertigo [Unknown]
  - Alexia [Unknown]
  - Sensory loss [Unknown]
  - Gait disturbance [Unknown]
  - Aphasia [Unknown]
  - Sensory disturbance [Unknown]
  - Coordination abnormal [Unknown]
  - Muscular weakness [Unknown]
  - Depression [Unknown]
  - Cushingoid [Unknown]
  - Rash [Unknown]
  - Disturbance in attention [Unknown]
